FAERS Safety Report 12517677 (Version 1)
Quarter: 2016Q2

REPORT INFORMATION
  Report Type: Spontaneous
  Country: CA (occurrence: CA)
  Receive Date: 20160630
  Receipt Date: 20160630
  Transmission Date: 20160815
  Serious: Yes (Other)
  Sender: FDA-Public Use
  Company Number: PHHY2016CA087060

PATIENT
  Sex: Female

DRUGS (4)
  1. GLYCOPYRRONIUM BROMIDE [Suspect]
     Active Substance: GLYCOPYRRONIUM
     Indication: FOETAL EXPOSURE DURING PREGNANCY
     Dosage: UNK
     Route: 064
  2. OXYTOCIN. [Suspect]
     Active Substance: OXYTOCIN
     Indication: FOETAL EXPOSURE DURING PREGNANCY
     Dosage: UNK
     Route: 064
  3. OXYTOCIN. [Suspect]
     Active Substance: OXYTOCIN
     Dosage: (MATERNAL DOSE: 10 MU/MINUTE)
     Route: 064
  4. OXYTOCIN. [Suspect]
     Active Substance: OXYTOCIN
     Dosage: (MATERNAL DOSE: 40 U IN 1000 ML)
     Route: 064

REACTIONS (3)
  - Premature baby [Unknown]
  - Apgar score low [Unknown]
  - Foetal exposure during pregnancy [Unknown]
